FAERS Safety Report 6038605-7 (Version None)
Quarter: 2009Q1

REPORT INFORMATION
  Report Type: 
  Country: None (occurrence: None)
  Receive Date: 20090115
  Receipt Date: 20090112
  Transmission Date: 20090719
  Serious: Yes (Other)
  Sender: FDA-Public Use
  Company Number: D0060135A

PATIENT
  Sex: Male

DRUGS (5)
  1. DIGOXIN [Suspect]
     Route: 065
  2. AMIODARONE HCL [Suspect]
     Route: 065
  3. CLARITHROMYCIN [Suspect]
     Route: 065
  4. METRONIDAZOLE [Suspect]
     Route: 065
  5. SPIRONOLACTONE [Suspect]
     Route: 065

REACTIONS (1)
  - HEPATITIS ACUTE [None]
